FAERS Safety Report 16798303 (Version 1)
Quarter: 2019Q4

REPORT INFORMATION
  Report Type: Spontaneous
  Country: US (occurrence: US)
  Receive Date: 20190911
  Receipt Date: 20190911
  Transmission Date: 20200122
  Serious: Yes (Hospitalization)
  Sender: FDA-Public Use
  Company Number: None

PATIENT

DRUGS (2)
  1. NOVOLIN WALMART [Concomitant]
  2. NOVOLIN [Suspect]
     Active Substance: INSULIN HUMAN
     Indication: TYPE 1 DIABETES MELLITUS

REACTIONS (3)
  - Diabetes mellitus inadequate control [None]
  - Insurance issue [None]
  - Diabetic ketoacidosis [None]
